FAERS Safety Report 9342457 (Version 1)
Quarter: 2013Q2

REPORT INFORMATION
  Report Type: Spontaneous
  Country: ES (occurrence: ES)
  Receive Date: 20130611
  Receipt Date: 20130611
  Transmission Date: 20140414
  Serious: Yes (Other)
  Sender: FDA-Public Use
  Company Number: ES-009507513-1305ESP015418

PATIENT
  Age: 33 Year
  Sex: Female
  Weight: 62 kg

DRUGS (2)
  1. EZETROL [Suspect]
     Indication: TYPE IIA HYPERLIPIDAEMIA
     Dosage: 10 MG, QD
     Route: 048
     Dates: start: 200310
  2. CARDYL [Concomitant]
     Dosage: 2 MG, QPM (AT DINNER)
     Route: 048

REACTIONS (1)
  - Aphasia [Not Recovered/Not Resolved]
